FAERS Safety Report 4928060-X (Version None)
Quarter: 2006Q1

REPORT INFORMATION
  Report Type: 
  Country: None (occurrence: None)
  Receive Date: 20060223
  Receipt Date: 20060213
  Transmission Date: 20060701
  Serious: Yes (Death)
  Sender: FDA-Public Use
  Company Number: 2006011537

PATIENT
  Age: 62 Year
  Sex: Male

DRUGS (10)
  1. LYRICA [Suspect]
     Indication: POST HERPETIC NEURALGIA
     Dosage: DAILY, ORAL
     Route: 048
     Dates: start: 20051103
  2. DIHYDROCODEINE (DIHYDROCODEINE) [Concomitant]
  3. TEMAZEPAM [Concomitant]
  4. ASPIRIN [Concomitant]
  5. BUMETANIDE [Concomitant]
  6. SPIRONOLACTONE [Concomitant]
  7. ISOSORBIDE MONONITRATE [Concomitant]
  8. PERINDOPRIL (PERINDOPRIL) [Concomitant]
  9. SIMVASTATIN [Concomitant]
  10. BISOPROLOL (BISOPROLOL) [Concomitant]

REACTIONS (4)
  - CARDIAC DISORDER [None]
  - CARDIAC FAILURE [None]
  - CORONARY ARTERY DISEASE [None]
  - MYOCARDIAL ISCHAEMIA [None]
